FAERS Safety Report 9499447 (Version 1)
Quarter: 2013Q3

REPORT INFORMATION
  Report Type: Spontaneous
  Country: US (occurrence: None)
  Receive Date: 20130903
  Receipt Date: 20130903
  Transmission Date: 20140515
  Serious: Yes (Hospitalization)
  Sender: FDA-Public Use
  Company Number: None

PATIENT
  Age: 75 Year
  Sex: Female
  Weight: 64.5 kg

DRUGS (3)
  1. CARBOPLATIN [Suspect]
  2. CETUXIMAB (ERBITUX) (714692) [Suspect]
  3. PACLITAXEL (TAXOL) [Suspect]

REACTIONS (4)
  - Dyspnoea [None]
  - Chest discomfort [None]
  - Mass [None]
  - Infarction [None]
